FAERS Safety Report 5067937-4 (Version None)
Quarter: 2006Q3

REPORT INFORMATION
  Report Type: 
  Country: None (occurrence: None)
  Receive Date: 20060802
  Receipt Date: 20060724
  Transmission Date: 20061208
  Serious: Yes (Death)
  Sender: FDA-Public Use
  Company Number: NO-AVENTIS-200617906GDDC

PATIENT
  Age: 82 Year
  Sex: Female

DRUGS (6)
  1. RIFAMPIN AND ISONIAZID [Suspect]
     Indication: PLEURISY
     Dosage: DOSE: UNK
     Route: 048
     Dates: start: 20051213, end: 20060120
  2. RIFAMPIN AND ISONIAZID [Suspect]
     Indication: TUBERCULOSIS
     Dosage: DOSE: UNK
     Route: 048
     Dates: start: 20051213, end: 20060120
  3. PYRIDOXINE HCL [Concomitant]
     Route: 048
  4. ALLOPUR [Concomitant]
     Route: 048
  5. SELO-ZOK [Concomitant]
     Route: 048
  6. COZAAR [Concomitant]
     Dosage: DOSE: 50 MG/12.5 MG
     Route: 048

REACTIONS (9)
  - BLOOD BILIRUBIN INCREASED [None]
  - HEPATIC FAILURE [None]
  - HEPATORENAL SYNDROME [None]
  - HEPATOTOXICITY [None]
  - ICTERUS INDEX INCREASED [None]
  - LIVER DISORDER [None]
  - MESOTHELIOMA MALIGNANT [None]
  - TRANSAMINASES INCREASED [None]
  - VOMITING [None]
